FAERS Safety Report 10134023 (Version 1)
Quarter: 2014Q2

REPORT INFORMATION
  Report Type: Spontaneous
  Country: US (occurrence: US)
  Receive Date: 20140428
  Receipt Date: 20140428
  Transmission Date: 20141212
  Serious: Yes (Disabling, Other)
  Sender: FDA-Public Use
  Company Number: US-TEVA-477446USA

PATIENT
  Sex: Female

DRUGS (2)
  1. ALENDRONIC ACID [Suspect]
  2. FOSAMAX [Suspect]

REACTIONS (3)
  - Femur fracture [Unknown]
  - Low turnover osteopathy [Unknown]
  - Fracture [Unknown]
